FAERS Safety Report 10131153 (Version 1)
Quarter: 2014Q2

REPORT INFORMATION
  Report Type: Report from Study
  Country: AU (occurrence: AU)
  Receive Date: 20140428
  Receipt Date: 20140428
  Transmission Date: 20141212
  Serious: Yes (Death, Other)
  Sender: FDA-Public Use
  Company Number: AU-MPIJNJ-2014JNJ003103

PATIENT
  Sex: 0

DRUGS (1)
  1. VELCADE [Suspect]
     Indication: LIGHT CHAIN DISEASE
     Dosage: 2700 MG, UNK
     Route: 065

REACTIONS (2)
  - Hepatic failure [Fatal]
  - Off label use [Unknown]
